FAERS Safety Report 14739879 (Version 3)
Quarter: 2018Q2

REPORT INFORMATION
  Report Type: Spontaneous
  Country: US (occurrence: US)
  Receive Date: 20180410
  Receipt Date: 20180522
  Transmission Date: 20180711
  Serious: No
  Sender: FDA-Public Use
  Company Number: US-PFIZER INC-2018145098

PATIENT
  Age: 54 Year
  Sex: Female
  Weight: 65.77 kg

DRUGS (2)
  1. ADVIL [Suspect]
     Active Substance: IBUPROFEN
     Dosage: 200 MG, 4X/DAY (200 MG MINI GELS BY MOUTH EVERY 6 HOURS)
     Route: 048
     Dates: start: 20180405, end: 20180405
  2. ADVIL [Suspect]
     Active Substance: IBUPROFEN
     Indication: ABDOMINAL PAIN UPPER
     Dosage: 2 DF, FOUR TIMES A DAY, TOOK ANOTHER TWO LATER ON FOR EVERY 6 HOURS, AND TOOK THE PRODUCT IN EVENING
     Route: 048
     Dates: start: 20180404, end: 20180404

REACTIONS (6)
  - Abdominal pain upper [Recovering/Resolving]
  - Dizziness [Recovering/Resolving]
  - Nausea [Recovering/Resolving]
  - Drug ineffective [Recovering/Resolving]
  - Condition aggravated [Recovering/Resolving]
  - Feeling abnormal [Recovering/Resolving]

NARRATIVE: CASE EVENT DATE: 20180404
